FAERS Safety Report 11125277 (Version 1)
Quarter: 2015Q2

REPORT INFORMATION
  Report Type: Spontaneous
  Country: CA (occurrence: CA)
  Receive Date: 20150520
  Receipt Date: 20150520
  Transmission Date: 20150821
  Serious: Yes (Other)
  Sender: FDA-Public Use
  Company Number: PHHY2015CA058864

PATIENT
  Age: 58 Year
  Sex: Male

DRUGS (1)
  1. NILOTINIB [Suspect]
     Active Substance: NILOTINIB
     Indication: CHRONIC MYELOID LEUKAEMIA
     Dosage: 400 MG, BID
     Route: 065

REACTIONS (6)
  - Angioimmunoblastic T-cell lymphoma [Recovering/Resolving]
  - Lymphadenopathy mediastinal [Recovering/Resolving]
  - Lymphadenopathy [Recovering/Resolving]
  - Abdominal lymphadenopathy [Recovering/Resolving]
  - Second primary malignancy [Unknown]
  - Hepatosplenomegaly [Recovering/Resolving]

NARRATIVE: CASE EVENT DATE: 201209
